FAERS Safety Report 25619211 (Version 1)
Quarter: 2025Q3

REPORT INFORMATION
  Report Type: Spontaneous
  Country: EU (occurrence: EU)
  Receive Date: 20250729
  Receipt Date: 20250729
  Transmission Date: 20251020
  Serious: Yes (Hospitalization, Other)
  Sender: MYLAN
  Company Number: EU-TOWA-202502476

PATIENT
  Age: 63 Year
  Sex: Female

DRUGS (17)
  1. METOPROLOL [Suspect]
     Active Substance: METOPROLOL
     Indication: Hypertension
  2. PANTOPRAZOLE [Suspect]
     Active Substance: PANTOPRAZOLE
     Indication: Hiatus hernia
  3. ROSUVASTATIN [Suspect]
     Active Substance: ROSUVASTATIN
     Indication: Hypertension
  4. ENALAPRIL [Suspect]
     Active Substance: ENALAPRIL
     Indication: Hypertension
  5. AMLODIPINE [Suspect]
     Active Substance: AMLODIPINE BESYLATE
     Indication: Hypertension
  6. SPIRONOLACTONE [Suspect]
     Active Substance: SPIRONOLACTONE
     Indication: Hypertension
  7. BENDROFLUMETHIAZIDE [Suspect]
     Active Substance: BENDROFLUMETHIAZIDE
     Indication: Hypertension
  8. NYSTATIN [Suspect]
     Active Substance: NYSTATIN
     Indication: Staphylococcal infection
  9. NYSTATIN [Suspect]
     Active Substance: NYSTATIN
     Indication: Mouth ulceration
  10. NYSTATIN [Suspect]
     Active Substance: NYSTATIN
     Indication: Oesophagitis
  11. DICLOXACILLIN [Suspect]
     Active Substance: DICLOXACILLIN
     Indication: Staphylococcal infection
  12. DICLOXACILLIN [Suspect]
     Active Substance: DICLOXACILLIN
     Indication: Mouth ulceration
  13. DICLOXACILLIN [Suspect]
     Active Substance: DICLOXACILLIN
     Indication: Oesophagitis
  14. PREDNISOLONE [Concomitant]
     Active Substance: PREDNISOLONE
     Indication: Arthralgia
  15. PREDNISOLONE [Concomitant]
     Active Substance: PREDNISOLONE
     Indication: Joint swelling
  16. PREDNISOLONE [Concomitant]
     Active Substance: PREDNISOLONE
     Indication: Peripheral swelling
  17. FLUCONAZOLE [Concomitant]
     Active Substance: FLUCONAZOLE
     Indication: Staphylococcal infection

REACTIONS (1)
  - Systemic lupus erythematosus [Recovered/Resolved]
